FAERS Safety Report 17823705 (Version 1)
Quarter: 2020Q2

REPORT INFORMATION
  Report Type: Spontaneous
  Country: US (occurrence: US)
  Receive Date: 20200523
  Receipt Date: 20200523
  Transmission Date: 20200714
  Serious: No
  Sender: FDA-Public Use
  Company Number: None

PATIENT
  Sex: Male

DRUGS (2)
  1. HUMIRA [Suspect]
     Active Substance: ADALIMUMAB
     Indication: GASTROENTERITIS
     Dosage: ?          OTHER DOSE:40;OTHER ROUTE:UNDER THE SKIN?
     Route: 058
     Dates: start: 20190905
  2. HUMIRA [Suspect]
     Active Substance: ADALIMUMAB
     Indication: COLITIS
     Dosage: ?          OTHER DOSE:40;OTHER ROUTE:UNDER THE SKIN?
     Route: 058
     Dates: start: 20190905

REACTIONS (2)
  - Therapy interrupted [None]
  - Flatulence [None]
